FAERS Safety Report 12563364 (Version 5)
Quarter: 2018Q1

REPORT INFORMATION
  Report Type: Report from Study
  Country: None (occurrence: US)
  Receive Date: 20160715
  Receipt Date: 20180106
  Transmission Date: 20180508
  Serious: Yes (Hospitalization, Other)
  Sender: FDA-Public Use
  Company Number: US-ABBVIE-16K-163-1672693-00

PATIENT
  Age: 20 Year
  Sex: Male

DRUGS (2)
  1. HUMIRA [Suspect]
     Active Substance: ADALIMUMAB
     Indication: CROHN^S DISEASE
     Route: 058
     Dates: start: 20151204, end: 20160410
  2. HUMIRA [Suspect]
     Active Substance: ADALIMUMAB
     Route: 058

REACTIONS (5)
  - Appendicectomy [Unknown]
  - Subcutaneous abscess [Recovered/Resolved]
  - Weight decreased [Recovering/Resolving]
  - Post procedural complication [Recovering/Resolving]
  - Small intestinal resection [Recovered/Resolved]

NARRATIVE: CASE EVENT DATE: 2016
